FAERS Safety Report 7450267-0 (Version None)
Quarter: 2011Q2

REPORT INFORMATION
  Report Type: 
  Country: None (occurrence: None)
  Receive Date: 20110422
  Receipt Date: 20110414
  Transmission Date: 20111010
  Serious: Yes (Other)
  Sender: FDA-Public Use
  Company Number: AXC-2011-000137

PATIENT
  Age: 12 Year
  Sex: Female

DRUGS (3)
  1. MESALAMINE [Suspect]
     Indication: COLITIS
     Dates: start: 20100301, end: 20100301
  2. MESALAMINE [Suspect]
     Indication: COLITIS
     Dosage: 500 MG, BID, ORAL; 2000-3000MG, QD, ORAL
     Route: 048
     Dates: start: 20100101
  3. MESALAMINE [Suspect]
     Indication: COLITIS
     Dosage: 500 MG, BID, ORAL; 2000-3000MG, QD, ORAL
     Route: 048
     Dates: start: 20100301, end: 20100101

REACTIONS (3)
  - RENAL COLIC [None]
  - CHROMATURIA [None]
  - BLOOD URINE PRESENT [None]
